FAERS Safety Report 13908920 (Version 1)
Quarter: 2017Q3

REPORT INFORMATION
  Report Type: Spontaneous
  Country: JP (occurrence: JP)
  Receive Date: 20170828
  Receipt Date: 20170828
  Transmission Date: 20171127
  Serious: Yes (Hospitalization, Other)
  Sender: FDA-Public Use
  Company Number: JP-ACCORD-057629

PATIENT
  Age: 87 Year
  Sex: Female
  Weight: 42 kg

DRUGS (3)
  1. SUCRALFATE. [Concomitant]
     Active Substance: SUCRALFATE
  2. CLONAZEPAM. [Suspect]
     Active Substance: CLONAZEPAM
     Indication: EPILEPSY
  3. URSODEOXYCHOLATE SODIUM/URSODEOXYCHOLIC ACID [Concomitant]

REACTIONS (4)
  - Bradycardia [Recovered/Resolved]
  - Cardiomegaly [Unknown]
  - Atrioventricular block first degree [Unknown]
  - Hypothyroidism [Unknown]
